FAERS Safety Report 7010114-8 (Version None)
Quarter: 2010Q3

REPORT INFORMATION
  Report Type: 
  Country: None (occurrence: None)
  Receive Date: 20100909
  Receipt Date: 20100526
  Transmission Date: 20110219
  Serious: Yes (Other)
  Sender: FDA-Public Use
  Company Number: 2010068624

PATIENT
  Sex: Male

DRUGS (2)
  1. LOPID [Suspect]
     Dates: start: 20091101, end: 20100510
  2. SYNTHROID [Concomitant]

REACTIONS (2)
  - ARTHRALGIA [None]
  - MYALGIA [None]
